FAERS Safety Report 14150208 (Version 1)
Quarter: 2017Q4

REPORT INFORMATION
  Report Type: Spontaneous
  Country: GB (occurrence: GB)
  Receive Date: 20171101
  Receipt Date: 20171101
  Transmission Date: 20180321
  Serious: Yes (Other)
  Sender: FDA-Public Use
  Company Number: GB-MYLANLABS-2017M1067906

PATIENT
  Age: 73 Year
  Sex: Female
  Weight: 76 kg

DRUGS (12)
  1. AMOXICILLIN. [Concomitant]
     Active Substance: AMOXICILLIN
     Dates: start: 20170727, end: 20170803
  2. CLENIL MODULITE [Concomitant]
     Active Substance: BECLOMETHASONE DIPROPIONATE
     Dosage: 1 PUFF TWICE A DAY, THIS IS A BRANDED CFC FREE
     Dates: start: 20170428
  3. BETAMETHASONE VALERATE. [Concomitant]
     Active Substance: BETAMETHASONE VALERATE
     Dosage: USE AS DIRECTED
     Dates: start: 20170616
  4. OTOMIZE [Concomitant]
     Active Substance: DEXAMETHASONE\NEOMYCIN SULFATE
     Dates: start: 20170321
  5. MONTELUKAST [Suspect]
     Active Substance: MONTELUKAST SODIUM
     Indication: PRODUCT USED FOR UNKNOWN INDICATION
     Dates: start: 20170727
  6. ESTRADIOL. [Concomitant]
     Active Substance: ESTRADIOL
     Dates: start: 20170102
  7. FOSTAIR [Concomitant]
     Active Substance: BECLOMETHASONE\FORMOTEROL
     Dosage: FOR ADULTS OVER 18 INHALE TWO DOSES TWICE A DA...
     Dates: start: 20170727, end: 20171009
  8. SALMETEROL [Concomitant]
     Active Substance: SALMETEROL
     Dates: start: 20170112, end: 20170807
  9. PREDNISOLONE. [Concomitant]
     Active Substance: PREDNISOLONE
     Dosage: RESCUE MEDICATION  TAKE SIX TABLETS ONCE DAILY ...
     Dates: start: 20160927
  10. VENTOLIN [Concomitant]
     Active Substance: ALBUTEROL SULFATE
     Dosage: INHALE TWO DOSES AS NEEDED
     Dates: start: 20170428
  11. DOXYCYCLINE. [Concomitant]
     Active Substance: DOXYCYCLINE
     Dosage: RESCUE MEDICATION OR TAKE TWO CAPSULES ON DAY O...
     Dates: start: 20161129
  12. LAXIDO [Concomitant]
     Active Substance: POLYETHYLENE GLYCOL 3350\POTASSIUM CHLORIDE\SODIUM BICARBONATE\SODIUM CHLORIDE
     Dates: start: 20170321

REACTIONS (2)
  - Wheezing [Recovered/Resolved]
  - Tremor [Recovered/Resolved]

NARRATIVE: CASE EVENT DATE: 20171013
